FAERS Safety Report 10573893 (Version 2)
Quarter: 2014Q4

REPORT INFORMATION
  Report Type: Report from Study
  Country: NL (occurrence: NL)
  Receive Date: 20141110
  Receipt Date: 20141110
  Transmission Date: 20150529
  Serious: Yes (Hospitalization, Other)
  Sender: FDA-Public Use
  Company Number: PHHY2014NL121530

PATIENT
  Age: 78 Year
  Sex: Female

DRUGS (2)
  1. SANDOSTATINE LAR [Suspect]
     Active Substance: OCTREOTIDE ACETATE
     Indication: METASTATIC CARCINOID TUMOUR
  2. SANDOSTATINE LAR [Suspect]
     Active Substance: OCTREOTIDE ACETATE
     Indication: NEUROENDOCRINE TUMOUR
     Dosage: 30 MG PER 2 ML, ONCE EVERY 4 WEEKS
     Route: 030
     Dates: start: 201312, end: 201409

REACTIONS (6)
  - Abdominal pain [Recovered/Resolved with Sequelae]
  - Pancreatitis [Recovered/Resolved with Sequelae]
  - Vomiting [Unknown]
  - Back pain [Unknown]
  - Nausea [Unknown]
  - Pancreatic pseudocyst [Unknown]

NARRATIVE: CASE EVENT DATE: 20140908
